FAERS Safety Report 4264719-8 (Version None)
Quarter: 2004Q1

REPORT INFORMATION
  Report Type: 
  Country: None (occurrence: None)
  Receive Date: 20040102
  Receipt Date: 20031223
  Transmission Date: 20041129
  Serious: Yes (Hospitalization, Other)
  Sender: FDA-Public Use
  Company Number: USA-2003-0005884

PATIENT
  Age: 34 Year
  Sex: Female
  Weight: 90.7 kg

DRUGS (43)
  1. OXYCONTIN [Suspect]
     Indication: PAIN
     Dosage: 80 MG, SEE TEXT, ORAL; 20 MG, SEE TEXT; 40 MG, BID, ORAL; 10 MG, TID; 20 MG, TID
     Route: 048
     Dates: start: 19991210
  2. XANAX [Suspect]
  3. NEURONTIN [Concomitant]
  4. FLEXERIL [Concomitant]
  5. DOXEPIN HCL [Concomitant]
  6. REMERON [Concomitant]
  7. TRAZODONE HCL [Concomitant]
  8. AMBIEN [Concomitant]
  9. ZANAFLEX [Concomitant]
  10. CLONIDINE [Concomitant]
  11. KLONOPIN [Concomitant]
  12. ATARAX [Concomitant]
  13. ATIVAN [Concomitant]
  14. VICODIN [Concomitant]
  15. INDERAL [Concomitant]
  16. ULTRAM [Concomitant]
  17. NAPROXEN [Concomitant]
  18. VALIUM [Concomitant]
  19. RISPERDAL [Concomitant]
  20. DEPAKOTE [Concomitant]
  21. THIAMINE (THIAMINE) [Concomitant]
  22. MELLARIL [Concomitant]
  23. IMITREX [Concomitant]
  24. LITHIUM CARBONATE [Concomitant]
  25. SEROQUEL [Concomitant]
  26. COGENTIN [Concomitant]
  27. TYLENOL W/ CODEINE NO. 3 [Concomitant]
  28. ALBUTEROL [Concomitant]
  29. HALDOL [Concomitant]
  30. IMITREX ^GLAXO^ (SUMATRIPTAN) [Concomitant]
  31. LIBRIUM ^HOFFMAN^ (CHLORDIAZEPOXIDE HYDROCHLORIDE) TABLET [Concomitant]
  32. ATENOLOL [Concomitant]
  33. PERCOCET [Concomitant]
  34. PROZAC [Concomitant]
  35. MAXALT [Concomitant]
  36. SKELAXIN [Concomitant]
  37. ANTIVERT [Concomitant]
  38. TRIMOX [Concomitant]
  39. RANITIDINE [Concomitant]
  40. NEXIUM [Concomitant]
  41. COMBIVENT [Concomitant]
  42. TEGRETOL [Concomitant]
  43. PROTONIX [Concomitant]

REACTIONS (46)
  - ACCIDENTAL OVERDOSE [None]
  - AGITATION [None]
  - ALCOHOL WITHDRAWAL SYNDROME [None]
  - ANXIETY [None]
  - ARTHRALGIA [None]
  - ASTHENIA [None]
  - ASTHMA [None]
  - BIPOLAR I DISORDER [None]
  - BLOOD GLUCOSE DECREASED [None]
  - BLOOD GLUCOSE INCREASED [None]
  - BLOOD PROLACTIN INCREASED [None]
  - BRONCHITIS [None]
  - CHILLS [None]
  - DEPRESSION [None]
  - DIZZINESS [None]
  - DRUG ABUSER [None]
  - DRUG DEPENDENCE [None]
  - DRUG WITHDRAWAL SYNDROME [None]
  - DYSARTHRIA [None]
  - DYSURIA [None]
  - FEELING ABNORMAL [None]
  - FEELING JITTERY [None]
  - FORMICATION [None]
  - GALACTORRHOEA [None]
  - GASTROENTERITIS [None]
  - HALLUCINATION, AUDITORY [None]
  - HEADACHE [None]
  - HEART RATE INCREASED [None]
  - HYPERHIDROSIS [None]
  - HYPERTENSION [None]
  - LOGORRHOEA [None]
  - LYMPHADENOPATHY [None]
  - MIGRAINE [None]
  - MULTIPLE DRUG OVERDOSE [None]
  - MYDRIASIS [None]
  - NAUSEA [None]
  - NIGHT SWEATS [None]
  - PAIN [None]
  - PARAESTHESIA ORAL [None]
  - PYREXIA [None]
  - RESPIRATORY RATE DECREASED [None]
  - RESPIRATORY TRACT CONGESTION [None]
  - SEDATION [None]
  - SINUSITIS [None]
  - THIRST [None]
  - VISION BLURRED [None]
